FAERS Safety Report 10151295 (Version 1)
Quarter: 2014Q2

REPORT INFORMATION
  Report Type: Spontaneous
  Country: US (occurrence: US)
  Receive Date: 20140502
  Receipt Date: 20140502
  Transmission Date: 20141212
  Serious: No
  Sender: FDA-Public Use
  Company Number: US-ASTRAZENECA-2013SE49883

PATIENT
  Age: 27 Year
  Sex: Male

DRUGS (10)
  1. PRILOSEC OTC [Suspect]
     Indication: DYSPEPSIA
     Route: 048
     Dates: start: 20130526, end: 20130625
  2. PRILOSEC OTC [Suspect]
     Indication: GASTROOESOPHAGEAL REFLUX DISEASE
     Route: 048
     Dates: start: 20130526, end: 20130625
  3. PRILOSEC OTC [Suspect]
     Indication: DYSPEPSIA
     Route: 048
  4. PRILOSEC OTC [Suspect]
     Indication: GASTROOESOPHAGEAL REFLUX DISEASE
     Route: 048
  5. CLOZAPINE [Concomitant]
     Dosage: UNKNOWN
  6. VENLAFAXINE [Concomitant]
     Dosage: UNKNOWN
  7. LUOXAPRIN [Concomitant]
     Dosage: UNKNOWN
  8. AMOXICILLIN [Concomitant]
     Dosage: UNKNOWN
  9. SERTRALINE HCL [Concomitant]
     Dosage: UNKNOWN
  10. ALEVE [Concomitant]
     Dosage: UNKNOWN

REACTIONS (2)
  - Drug screen positive [Unknown]
  - Intentional product misuse [Unknown]
